FAERS Safety Report 8101861-5 (Version None)
Quarter: 2012Q1

REPORT INFORMATION
  Report Type: 
  Country: None (occurrence: None)
  Receive Date: 20120131
  Receipt Date: 20120126
  Transmission Date: 20120608
  Serious: Yes (Life-Threatening)
  Sender: FDA-Public Use
  Company Number: PHEH2012US002343

PATIENT
  Sex: Female

DRUGS (1)
  1. RECLAST [Suspect]
     Dosage: UNK
     Route: 042
     Dates: start: 20110801

REACTIONS (5)
  - FEELING ABNORMAL [None]
  - INFLAMMATION [None]
  - MUSCULAR WEAKNESS [None]
  - ASTHENIA [None]
  - PAIN [None]
